FAERS Safety Report 16012445 (Version 3)
Quarter: 2019Q1

REPORT INFORMATION
  Report Type: Spontaneous
  Country: US (occurrence: US)
  Receive Date: 20190227
  Receipt Date: 20190304
  Transmission Date: 20190418
  Serious: Yes (Disabling, Other)
  Sender: FDA-Public Use
  Company Number: US-ROCHE-2270911

PATIENT
  Age: 51 Year
  Sex: Female
  Weight: 99.88 kg

DRUGS (14)
  1. KLONOPIN [Suspect]
     Active Substance: CLONAZEPAM
     Indication: EXAGGERATED STARTLE RESPONSE
     Route: 048
     Dates: start: 1999
  2. AMBIEN [Suspect]
     Active Substance: ZOLPIDEM TARTRATE
     Indication: PRODUCT USED FOR UNKNOWN INDICATION
     Route: 065
  3. TOPIRAMATE. [Concomitant]
     Active Substance: TOPIRAMATE
  4. LORAZEPAM. [Concomitant]
     Active Substance: LORAZEPAM
     Indication: EXAGGERATED STARTLE RESPONSE
     Route: 065
     Dates: start: 2004
  5. TRILEPTAL [Concomitant]
     Active Substance: OXCARBAZEPINE
  6. PRISTIQ EXTENDED-RELEASE [Concomitant]
     Active Substance: DESVENLAFAXINE SUCCINATE
  7. MAXALT [Concomitant]
     Active Substance: RIZATRIPTAN BENZOATE
     Indication: MIGRAINE
  8. TIZANIDINE. [Concomitant]
     Active Substance: TIZANIDINE
  9. VITAMIN C [Concomitant]
     Active Substance: ASCORBIC ACID
  10. KLONOPIN [Suspect]
     Active Substance: CLONAZEPAM
     Route: 048
  11. ZOLPIDEM [Concomitant]
     Active Substance: ZOLPIDEM\ZOLPIDEM TARTRATE
  12. MODAFINIL. [Concomitant]
     Active Substance: MODAFINIL
  13. OMEPRAZOLE. [Concomitant]
     Active Substance: OMEPRAZOLE
  14. DONEPEZIL. [Concomitant]
     Active Substance: DONEPEZIL

REACTIONS (10)
  - Intentional product use issue [Unknown]
  - Product complaint [Unknown]
  - Multiple sclerosis [Not Recovered/Not Resolved]
  - Breast cancer [Recovered/Resolved]
  - Serotonin syndrome [Unknown]
  - Sleep terror [Unknown]
  - Hot flush [Recovered/Resolved]
  - Off label use [Unknown]
  - Drug ineffective [Unknown]
  - Fatigue [Recovered/Resolved]

NARRATIVE: CASE EVENT DATE: 2011
